FAERS Safety Report 9475270 (Version 3)
Quarter: 2013Q4

REPORT INFORMATION
  Report Type: Report from Study
  Country: CA (occurrence: CA)
  Receive Date: 20130826
  Receipt Date: 20131005
  Transmission Date: 20140711
  Serious: Yes (Other)
  Sender: FDA-Public Use
  Company Number: CA-ROCHE-1266157

PATIENT
  Age: 66 Year
  Sex: Female

DRUGS (7)
  1. RITUXAN [Suspect]
     Indication: RHEUMATOID ARTHRITIS
     Dosage: FREQUENCY: DAY 1, 15
     Route: 042
     Dates: start: 20100923
  2. RITUXAN [Suspect]
     Route: 042
  3. DIPHENHYDRAMINE HCL [Concomitant]
     Indication: PREMEDICATION
     Route: 048
     Dates: start: 20100923
  4. ACETAMINOPHEN [Concomitant]
     Indication: PREMEDICATION
     Route: 048
     Dates: start: 20100923
  5. ACETAMINOPHEN [Concomitant]
     Route: 048
     Dates: start: 20121114
  6. METHYLPREDNISOLONE [Concomitant]
     Indication: PREMEDICATION
     Route: 042
     Dates: start: 20100923
  7. TYLENOL [Concomitant]

REACTIONS (4)
  - Blood cholesterol increased [Not Recovered/Not Resolved]
  - Throat irritation [Recovered/Resolved]
  - Heart rate decreased [Unknown]
  - Hypotension [Unknown]
